FAERS Safety Report 14119693 (Version 8)
Quarter: 2018Q2

REPORT INFORMATION
  Report Type: Spontaneous
  Country: US (occurrence: US)
  Receive Date: 20171024
  Receipt Date: 20180514
  Transmission Date: 20180711
  Serious: Yes (Congenital Anomaly, Other)
  Sender: FDA-Public Use
  Company Number: PHEH2017US033613

PATIENT
  Sex: Female

DRUGS (3)
  1. ZOFRAN [Suspect]
     Active Substance: ONDANSETRON HYDROCHLORIDE
     Indication: FOETAL EXPOSURE DURING PREGNANCY
     Dosage: MOTHER^S DOSE: 1 DF, Q8H, PRN
     Route: 064
  2. ONDANSETRON HYDROCHLORIDE. [Suspect]
     Active Substance: ONDANSETRON HYDROCHLORIDE
     Indication: FOETAL EXPOSURE DURING PREGNANCY
     Dosage: MOTHER^S DOSE: 1 DF, Q8H, AS NEEDED
     Route: 064
  3. ZOFRAN [Suspect]
     Active Substance: ONDANSETRON HYDROCHLORIDE
     Indication: FOETAL EXPOSURE DURING PREGNANCY
     Dosage: MOTHER^S DOSE: 08 MG QD, 04 MG QD
     Route: 064

REACTIONS (33)
  - Atrial septal defect [Unknown]
  - Developmental delay [Unknown]
  - Umbilical hernia [Unknown]
  - Laryngomalacia [Unknown]
  - Failure to thrive [Unknown]
  - Jaundice neonatal [Unknown]
  - Poor weight gain neonatal [Unknown]
  - Dysphagia [Unknown]
  - Gastrooesophageal reflux disease [Unknown]
  - Cerebrohepatorenal syndrome [Unknown]
  - Left atrial enlargement [Unknown]
  - Premature baby [Unknown]
  - Injury [Unknown]
  - Selective eating disorder [Unknown]
  - Nasal congestion [Unknown]
  - Atelectasis [Unknown]
  - Cough [Unknown]
  - Otitis media [Unknown]
  - Eustachian tube dysfunction [Unknown]
  - Wheezing [Unknown]
  - Stridor [Unknown]
  - Upper respiratory tract infection [Unknown]
  - Left-to-right cardiac shunt [Unknown]
  - Foetal exposure during pregnancy [Unknown]
  - Abdominal distension [Unknown]
  - Genital labial adhesions [Unknown]
  - Patent ductus arteriosus [Unknown]
  - Chronic sinusitis [Unknown]
  - Hypotonia [Unknown]
  - Cleft palate [Unknown]
  - Constipation [Unknown]
  - Aerophagia [Unknown]
  - Vomiting [Unknown]
